FAERS Safety Report 10945245 (Version 1)
Quarter: 2015Q1

REPORT INFORMATION
  Report Type: Spontaneous
  Country: US (occurrence: None)
  Receive Date: 20150212
  Receipt Date: 20150212
  Transmission Date: 20150721
  Serious: No
  Sender: FDA-Public Use
  Company Number: TPA2011A01608

PATIENT
  Age: 56 Year
  Sex: Male
  Weight: 95.26 kg

DRUGS (6)
  1. ULORIC [Suspect]
     Active Substance: FEBUXOSTAT
     Indication: GOUT
     Route: 048
  2. BENAZEPRIL [Concomitant]
     Active Substance: BENAZEPRIL\BENAZEPRIL HYDROCHLORIDE
  3. HYDROCHLOROTHIAZIDE (HYDROCHLOROTHIAZIDE) [Concomitant]
     Active Substance: HYDROCHLOROTHIAZIDE
  4. INDOMETHACIN (INDOMETHACIN) [Concomitant]
  5. ACTOS [Concomitant]
     Active Substance: PIOGLITAZONE HYDROCHLORIDE
  6. OXYCODONE (OXYCODONE) [Concomitant]
     Active Substance: OXYCODONE

REACTIONS (3)
  - Gout [None]
  - Pollakiuria [None]
  - Micturition urgency [None]
